FAERS Safety Report 5813921-X (Version None)
Quarter: 2008Q3

REPORT INFORMATION
  Report Type: 
  Country: None (occurrence: None)
  Receive Date: 20080717
  Receipt Date: 20080707
  Transmission Date: 20090109
  Serious: Yes (Death)
  Sender: FDA-Public Use
  Company Number: SE-SANOFI-SYNTHELABO-A01200807754

PATIENT
  Age: 29 Year
  Sex: Male

DRUGS (3)
  1. ANTIDEPRESSANTS (NOS) [Concomitant]
     Indication: DEPRESSION
     Dosage: UNK
     Route: 065
  2. METHADONE HCL [Suspect]
     Indication: DRUG USE FOR UNKNOWN INDICATION
     Route: 065
  3. ZOLPIDEM [Suspect]
     Indication: DRUG USE FOR UNKNOWN INDICATION
     Route: 048

REACTIONS (1)
  - DEATH [None]
